FAERS Safety Report 4621336-5 (Version None)
Quarter: 2005Q1

REPORT INFORMATION
  Report Type: 
  Country: None (occurrence: None)
  Receive Date: 20050324
  Receipt Date: 20050324
  Transmission Date: 20050727
  Serious: Yes (Hospitalization)
  Sender: FDA-Public Use
  Company Number: None

PATIENT
  Age: 41 Year
  Sex: Male
  Weight: 83.6 kg

DRUGS (5)
  1. OXCARBAZEPINE 600MG NOVARTIS [Suspect]
     Indication: BIPOLAR DISORDER
     Dosage: 1200MG TID ORAL
     Route: 048
     Dates: start: 20041027, end: 20041223
  2. PISPERIDAL CONSTA [Concomitant]
  3. CHOLORPROMAZINE [Concomitant]
  4. CLONAZEPAM [Concomitant]
  5. BENZTROPINE MESYLATE [Concomitant]

REACTIONS (7)
  - DISORIENTATION [None]
  - DRUG ABUSER [None]
  - DYSARTHRIA [None]
  - FALL [None]
  - GAIT DISTURBANCE [None]
  - HEAD INJURY [None]
  - SEDATION [None]
